FAERS Safety Report 22615797 (Version 1)
Quarter: 2023Q2

REPORT INFORMATION
  Report Type: Spontaneous
  Country: DE (occurrence: DE)
  Receive Date: 20230619
  Receipt Date: 20230619
  Transmission Date: 20230721
  Serious: Yes (Hospitalization, Other)
  Sender: FDA-Public Use
  Company Number: DE-MODERNATX-MOC20230601000036

PATIENT
  Age: 42 Year
  Sex: Male

DRUGS (2)
  1. PREDNISOLONE [Suspect]
     Active Substance: PREDNISOLONE
     Indication: Product used for unknown indication
     Dosage: UNK
     Route: 065
  2. ELIQUIS [Concomitant]
     Active Substance: APIXABAN
     Indication: Product used for unknown indication
     Dosage: UNK
     Route: 065

REACTIONS (18)
  - Depression [Unknown]
  - Embolism [Unknown]
  - Loss of consciousness [Unknown]
  - Pneumonia [Unknown]
  - Thrombosis [Unknown]
  - Hypoxia [Unknown]
  - Cardiovascular disorder [Unknown]
  - Pulmonary embolism [Unknown]
  - Epistaxis [Unknown]
  - Pleural effusion [Unknown]
  - Hepatic cyst [Unknown]
  - Haemangioma of liver [Unknown]
  - Syncope [Unknown]
  - Appendicitis [Unknown]
  - Haematoma [Unknown]
  - Hypotension [Unknown]
  - Lumbar spinal stenosis [Unknown]
  - Neuroendocrine tumour [Unknown]

NARRATIVE: CASE EVENT DATE: 20220301
